FAERS Safety Report 10228196 (Version 1)
Quarter: 2014Q2

REPORT INFORMATION
  Report Type: Spontaneous
  Country: US (occurrence: US)
  Receive Date: 20140610
  Receipt Date: 20140610
  Transmission Date: 20141212
  Serious: Yes (Other)
  Sender: FDA-Public Use
  Company Number: US-JNJFOC-20140602080

PATIENT
  Sex: Female

DRUGS (2)
  1. REMICADE [Suspect]
     Indication: CROHN^S DISEASE
     Route: 042
     Dates: start: 201309
  2. XARELTO [Concomitant]
     Indication: PULMONARY EMBOLISM
     Route: 065

REACTIONS (2)
  - Pneumonia [Recovered/Resolved]
  - Pulmonary embolism [Unknown]
